FAERS Safety Report 8557737-2 (Version None)
Quarter: 2012Q3

REPORT INFORMATION
  Report Type: 
  Country: None (occurrence: None)
  Receive Date: 20120801
  Receipt Date: 20120723
  Transmission Date: 20120928
  Serious: Yes (Hospitalization, Other)
  Sender: FDA-Public Use
  Company Number: FR-ASTRAZENECA-2012SE52227

PATIENT
  Age: 24001 Day
  Sex: Female

DRUGS (11)
  1. ANAFRANIL [Concomitant]
     Dosage: 25 MG/2ML, TWO TIMES A DAY
     Route: 030
     Dates: start: 20120620, end: 20120720
  2. NEXIUM [Suspect]
     Route: 048
     Dates: end: 20120625
  3. AVASTIN [Concomitant]
     Dosage: 1 COURSE WEEKLY
     Dates: start: 20120201
  4. TAXOL [Concomitant]
     Dosage: 1 COURSE WEEKLY
     Dates: start: 20120201
  5. ZYPREXA [Concomitant]
     Indication: MAJOR DEPRESSION
     Route: 048
     Dates: start: 20120628, end: 20120716
  6. CHLORPROMAZINE HCL [Suspect]
     Indication: MAJOR DEPRESSION
     Dosage: 200 DROPS DAILY +/- 50 DROPS AS REQUIRED
     Route: 048
     Dates: start: 20120620, end: 20120628
  7. ANAFRANIL [Concomitant]
     Indication: MAJOR DEPRESSION
     Route: 048
     Dates: start: 20120622, end: 20120704
  8. ANAFRANIL [Concomitant]
     Route: 030
     Dates: start: 20120621, end: 20120721
  9. ZOFRAN [Concomitant]
  10. CORTICOSTEROID [Concomitant]
  11. ANAFRANIL [Concomitant]
     Route: 048
     Dates: start: 20120705

REACTIONS (3)
  - ORTHOSTATIC HYPOTENSION [None]
  - MAJOR DEPRESSION [None]
  - BREAST CANCER RECURRENT [None]
